FAERS Safety Report 9881732 (Version 1)
Quarter: 2014Q1

REPORT INFORMATION
  Report Type: Spontaneous
  Country: US (occurrence: US)
  Receive Date: 20140207
  Receipt Date: 20140207
  Transmission Date: 20141002
  Serious: Yes (Other)
  Sender: FDA-Public Use
  Company Number: US-GILEAD-2011-0046254

PATIENT
  Age: 50 Year
  Sex: Male

DRUGS (1)
  1. TRUVADA [Suspect]
     Indication: HIV INFECTION
     Dosage: UNK
     Dates: end: 2010

REACTIONS (1)
  - Renal failure [Recovered/Resolved]
